FAERS Safety Report 19676687 (Version 1)
Quarter: 2021Q3

REPORT INFORMATION
  Report Type: Spontaneous
  Country: CA (occurrence: CA)
  Receive Date: 20210809
  Receipt Date: 20210809
  Transmission Date: 20211014
  Serious: Yes (Hospitalization)
  Sender: FDA-Public Use
  Company Number: CA-PFIZER INC-202100968690

PATIENT
  Age: 62 Year
  Sex: Female
  Weight: 55 kg

DRUGS (12)
  1. CALCIUM + VITAMIN D [CALCIUM;COLECALCIFEROL] [Concomitant]
     Active Substance: CALCIUM\CHOLECALCIFEROL
  2. FLOVENT [Concomitant]
     Active Substance: FLUTICASONE PROPIONATE
  3. SALBUTAMOL [Concomitant]
     Active Substance: ALBUTEROL
  4. DUAVIVE [Concomitant]
     Active Substance: BAZEDOXIFENE ACETATE\ESTROGENS, CONJUGATED
  5. MEDROXYPROGESTERONE [Concomitant]
     Active Substance: MEDROXYPROGESTERONE
  6. XARELTO [Concomitant]
     Active Substance: RIVAROXABAN
  7. ESTRADIOL. [Concomitant]
     Active Substance: ESTRADIOL
  8. FOLIC ACID. [Concomitant]
     Active Substance: FOLIC ACID
  9. FRAGMIN [Suspect]
     Active Substance: DALTEPARIN SODIUM
     Dosage: 12500 IU, 1X/DAY
     Route: 058
  10. DILAUDID [Concomitant]
     Active Substance: HYDROMORPHONE HYDROCHLORIDE
  11. METHOTREXATE. [Concomitant]
     Active Substance: METHOTREXATE
  12. PANTOLOC [Concomitant]
     Active Substance: PANTOPRAZOLE SODIUM

REACTIONS (3)
  - Heparin-induced thrombocytopenia [Unknown]
  - Headache [Unknown]
  - Nausea [Unknown]
